FAERS Safety Report 19779651 (Version 1)
Quarter: 2021Q3

REPORT INFORMATION
  Report Type: Spontaneous
  Country: US (occurrence: US)
  Receive Date: 20210902
  Receipt Date: 20210902
  Transmission Date: 20211014
  Serious: No
  Sender: FDA-Public Use
  Company Number: US-PUMA BIOTECHNOLOGY, LTD.-2020US004547

PATIENT

DRUGS (1)
  1. NERLYNX [Suspect]
     Active Substance: NERATINIB
     Indication: PRODUCT USED FOR UNKNOWN INDICATION
     Dosage: UNK
     Dates: start: 201911

REACTIONS (5)
  - Muscle spasms [Recovered/Resolved]
  - Abdominal distension [Not Recovered/Not Resolved]
  - Diarrhoea [Recovered/Resolved]
  - Dyspepsia [Not Recovered/Not Resolved]
  - Hyperchlorhydria [Not Recovered/Not Resolved]
